FAERS Safety Report 17090545 (Version 1)
Quarter: 2019Q4

REPORT INFORMATION
  Report Type: Spontaneous
  Country: US (occurrence: US)
  Receive Date: 20191031
  Receipt Date: 20191031
  Transmission Date: 20200122
  Serious: Yes (Hospitalization)
  Sender: FDA-Public Use
  Company Number: None

PATIENT
  Age: 76 Year
  Sex: Female

DRUGS (37)
  1. CALC ACETATE [Concomitant]
     Active Substance: CALCIUM ACETATE
  2. LUTEIN [Concomitant]
     Active Substance: LUTEIN
  3. SELENIUM [Concomitant]
     Active Substance: SELENIUM
  4. ALLEGRA [Concomitant]
     Active Substance: FEXOFENADINE HYDROCHLORIDE
  5. CIPROFLOXACIN. [Concomitant]
     Active Substance: CIPROFLOXACIN
  6. FISH OIL [Concomitant]
     Active Substance: FISH OIL
  7. RESVERATROL [Concomitant]
     Active Substance: DIETARY SUPPLEMENT\RESVERATROL
  8. VITAMIN C [Concomitant]
     Active Substance: ASCORBIC ACID
  9. VITA-PLUS E [Concomitant]
  10. ENBREL [Suspect]
     Active Substance: ETANERCEPT
     Indication: RHEUMATOID ARTHRITIS
     Route: 058
     Dates: start: 20160210
  11. CLOBETASOL [Concomitant]
     Active Substance: CLOBETASOL
  12. CRUSH VIT C [Concomitant]
  13. ESTRADIOL. [Concomitant]
     Active Substance: ESTRADIOL
  14. OMEGA 3 [Concomitant]
     Active Substance: OMEGA-3 FATTY ACIDS
  15. VITAMIN B [Concomitant]
     Active Substance: VITAMIN B
  16. CALCIUM [Concomitant]
     Active Substance: CALCIUM
  17. METHOTREXATE. [Concomitant]
     Active Substance: METHOTREXATE
  18. YUVAFEM [Concomitant]
     Active Substance: ESTRADIOL HEMIHYDRATE
  19. MOVIPREP [Concomitant]
     Active Substance: ASCORBIC ACID\POLYETHYLENE GLYCOL 3350\POTASSIUM CHLORIDE\SODIUM ASCORBATE\SODIUM CHLORIDE\SODIUM SULFATE
  20. OMEPRAZOLE. [Concomitant]
     Active Substance: OMEPRAZOLE
  21. PROTONIX [Concomitant]
     Active Substance: PANTOPRAZOLE SODIUM
  22. TYLENOL [Concomitant]
     Active Substance: ACETAMINOPHEN
  23. WAL-ZYR (CETIRIZINE HYDROCHLORIDE) [Concomitant]
     Active Substance: CETIRIZINE HYDROCHLORIDE
  24. ACIPHEX [Concomitant]
     Active Substance: RABEPRAZOLE SODIUM
  25. VITAMIN B COMPLEX [Concomitant]
     Active Substance: CYANOCOBALAMIN\DEXPANTHENOL\NIACINAMIDE\PYRIDOXINE HYDROCHLORIDE\RIBOFLAVIN 5^-PHOSPHATE SODIUM\THIAMINE HYDROCHLORIDE\VITAMIN B COMPLEX
  26. CETIRIZINE [Concomitant]
     Active Substance: CETIRIZINE HYDROCHLORIDE
  27. GUALIFENESIN [Concomitant]
  28. MAGNESIUM [Concomitant]
     Active Substance: MAGNESIUM
  29. VAGIFEM [Concomitant]
     Active Substance: ESTRADIOL
  30. LEVOXYL [Concomitant]
     Active Substance: LEVOTHYROXINE SODIUM
  31. METRONIDAZOL [Concomitant]
     Active Substance: METRONIDAZOLE
  32. SHARPS [Concomitant]
  33. VITAMIN D3 [Concomitant]
     Active Substance: CHOLECALCIFEROL
  34. ANTI-ITCH CRE [Concomitant]
  35. CLONAZEPAM. [Concomitant]
     Active Substance: CLONAZEPAM
  36. FOLIC ACID. [Concomitant]
     Active Substance: FOLIC ACID
  37. SIMVASTATIN. [Concomitant]
     Active Substance: SIMVASTATIN

REACTIONS (1)
  - Staphylococcal infection [None]

NARRATIVE: CASE EVENT DATE: 20190901
